FAERS Safety Report 17650662 (Version 1)
Quarter: 2020Q2

REPORT INFORMATION
  Report Type: Spontaneous
  Country: GB (occurrence: GB)
  Receive Date: 20200408
  Receipt Date: 20200408
  Transmission Date: 20200713
  Serious: Yes (Other)
  Sender: FDA-Public Use
  Company Number: GB-ELI_LILLY_AND_COMPANY-GB202004001066

PATIENT
  Age: 49 Year
  Sex: Male

DRUGS (1)
  1. HUMULIN N [Suspect]
     Active Substance: INSULIN HUMAN
     Indication: TYPE 2 DIABETES MELLITUS
     Dosage: 18 INTERNATIONAL UNIT, SINGLE
     Route: 058
     Dates: start: 20200319, end: 20200319

REACTIONS (6)
  - Skin warm [Recovered/Resolved]
  - Urticaria [Recovered/Resolved]
  - Injection site hypersensitivity [Recovered/Resolved]
  - Pruritus [Recovered/Resolved]
  - Rash erythematous [Recovered/Resolved]
  - Injection site erythema [Recovering/Resolving]
